FAERS Safety Report 5162193-0 (Version None)
Quarter: 2006Q4

REPORT INFORMATION
  Report Type: 
  Country: None (occurrence: None)
  Receive Date: 20061121
  Receipt Date: 20061113
  Transmission Date: 20070319
  Serious: Yes (Life-Threatening)
  Sender: FDA-Public Use
  Company Number: HQWYE216109AUG06

PATIENT
  Age: 18 Year
  Sex: Male

DRUGS (22)
  1. MYLOTARG [Suspect]
     Indication: ACUTE LEUKAEMIA
     Dosage: 9 MG/M^2 1X PER 1 DAY INTRAVENOUS DRIP
     Route: 041
     Dates: start: 20060516, end: 20060516
  2. ACYCLOVIR [Suspect]
     Indication: PROPHYLAXIS
     Dosage: 500 MG 1X PER 1 DAY INTRAVENOUS DRIP
     Route: 041
     Dates: start: 20060514, end: 20060527
  3. ACYCLOVIR [Suspect]
     Indication: PROPHYLAXIS
     Dosage: 500 MG 1X PER 1 DAY INTRAVENOUS DRIP
     Route: 041
     Dates: start: 20060604
  4. CYTARABINE [Suspect]
     Indication: ACUTE LEUKAEMIA
     Dosage: UNKNOWN DAILY DOSE INTRAVENOUS DRIP
     Route: 041
     Dates: start: 20060512, end: 20060514
  5. CYTARABINE [Suspect]
     Indication: ACUTE LEUKAEMIA
     Dosage: UNKNOWN DAILY DOSE INTRAVENOUS DRIP
     Route: 041
     Dates: start: 20060630, end: 20060702
  6. FAMOTIDINE [Suspect]
     Indication: PROPHYLAXIS
     Dosage: 80 MG 1X PER 1 DAY ORAL
     Route: 048
     Dates: start: 20060514, end: 20060517
  7. MEROPEN (MEROPENEM) [Suspect]
     Indication: SEPSIS
     Dosage: UNKNOWN DAILY DOSE INTRAVENOUS DRIP
     Route: 041
     Dates: start: 20060514, end: 20060525
  8. PROGRAF [Suspect]
     Indication: GRAFT VERSUS HOST DISEASE
     Dosage: 4 MG 1X PER 1 DAY ORAL
     Route: 048
     Dates: start: 20060527, end: 20060601
  9. TARGOCID [Suspect]
     Indication: SEPSIS
     Dosage: 400 MG 1X PER 1 DAY INTRAVENOUS DRIP
     Route: 041
     Dates: start: 20060519
  10. VFEND [Suspect]
     Indication: SEPSIS
     Dosage: 400 MG 1X PER 1DAY INTRAVENOUS DRIP
     Route: 041
     Dates: start: 20060516
  11. CIPROFLOXACIN HCL [Concomitant]
  12. GANCICLOVIR [Concomitant]
  13. URSO 250 [Concomitant]
  14. BLOPRESS (CANDESARTAN CILEXETIL) [Concomitant]
  15. OMEPRAZOLE [Concomitant]
  16. MORPHINE [Concomitant]
  17. BIOFERIN R (STREPTOCOCCUS FAECALIS) [Concomitant]
  18. ADSORBIN (ALUMINIUM SILICATE) [Concomitant]
  19. LOPERAMIDE HCL [Concomitant]
  20. AMLODIPINE BESYLATE [Concomitant]
  21. REBETOL [Concomitant]
  22. HYCAMTIN [Concomitant]

REACTIONS (7)
  - CHRONIC GRAFT VERSUS HOST DISEASE [None]
  - CONDITION AGGRAVATED [None]
  - DISSEMINATED INTRAVASCULAR COAGULATION [None]
  - HYPERBILIRUBINAEMIA [None]
  - OXYGEN SATURATION DECREASED [None]
  - RENAL FAILURE ACUTE [None]
  - SEPSIS [None]
